FAERS Safety Report 24082972 (Version 2)
Quarter: 2024Q3

REPORT INFORMATION
  Report Type: Spontaneous
  Country: FI (occurrence: FI)
  Receive Date: 20240712
  Receipt Date: 20240830
  Transmission Date: 20241016
  Serious: Yes (Hospitalization, Other)
  Sender: AMGEN
  Company Number: FI-AMGEN-FINSP2024136407

PATIENT

DRUGS (5)
  1. ADALIMUMAB [Suspect]
     Active Substance: ADALIMUMAB
     Indication: Crohn^s disease
     Dosage: UNK
     Route: 065
  2. ADALIMUMAB [Suspect]
     Active Substance: ADALIMUMAB
     Indication: Colitis ulcerative
  3. ADALIMUMAB [Suspect]
     Active Substance: ADALIMUMAB
     Indication: Inflammatory bowel disease
  4. METRONIDAZOLE [Suspect]
     Active Substance: METRONIDAZOLE
     Indication: Product used for unknown indication
     Route: 065
  5. CIPROFLOXACIN [Suspect]
     Active Substance: CIPROFLOXACIN
     Indication: Product used for unknown indication
     Route: 065

REACTIONS (17)
  - Cholangitis sclerosing [Unknown]
  - Unevaluable event [Unknown]
  - Drug specific antibody present [Unknown]
  - Gamma-glutamyltransferase increased [Unknown]
  - Skin reaction [Unknown]
  - Full blood count abnormal [Unknown]
  - Therapeutic product effect decreased [Unknown]
  - Treatment noncompliance [Unknown]
  - Faecal calprotectin increased [Unknown]
  - Inflammation [Unknown]
  - Alanine aminotransferase increased [Unknown]
  - Infection [Unknown]
  - Vasculitis [Unknown]
  - Hepatic enzyme increased [Not Recovered/Not Resolved]
  - Hypersensitivity [Unknown]
  - Nausea [Unknown]
  - Pyrexia [Unknown]
